FAERS Safety Report 4688725-4 (Version None)
Quarter: 2005Q2

REPORT INFORMATION
  Report Type: 
  Country: None (occurrence: None)
  Receive Date: 20050609
  Receipt Date: 20050609
  Transmission Date: 20051028
  Serious: Yes (Hospitalization)
  Sender: FDA-Public Use
  Company Number: None

PATIENT
  Age: 56 Year
  Sex: Female
  Weight: 67 kg

DRUGS (1)
  1. SOLU-MEDROL [Suspect]
     Indication: BRONCHITIS
     Dosage: 125 MG IV
     Route: 042
     Dates: start: 20050411, end: 20050413

REACTIONS (4)
  - BRONCHITIS [None]
  - HYPERTENSION [None]
  - HYPOXIA [None]
  - RENAL FAILURE [None]
